FAERS Safety Report 6094664-7 (Version None)
Quarter: 2009Q1

REPORT INFORMATION
  Report Type: 
  Country: None (occurrence: None)
  Receive Date: 20090224
  Receipt Date: 20090213
  Transmission Date: 20090719
  Serious: Yes (Hospitalization)
  Sender: FDA-Public Use
  Company Number: 2008AP003340

PATIENT
  Age: 48 Year
  Sex: Female

DRUGS (2)
  1. CARBAMAZEPINE [Suspect]
     Indication: EPILEPSY
     Dosage: 1500 MG; QD
  2. PREGABALIN (PREGABALIN) [Suspect]
     Indication: EPILEPSY
     Dosage: 300 MG; QD

REACTIONS (5)
  - CENTRAL NERVOUS SYSTEM LESION [None]
  - CYTOTOXIC OEDEMA [None]
  - DISTURBANCE IN ATTENTION [None]
  - GAMMA-GLUTAMYLTRANSFERASE INCREASED [None]
  - THROMBOCYTHAEMIA [None]
